FAERS Safety Report 23277948 (Version 1)
Quarter: 2023Q4

REPORT INFORMATION
  Report Type: Spontaneous
  Country: CH (occurrence: None)
  Receive Date: 20231208
  Receipt Date: 20231208
  Transmission Date: 20240110
  Serious: Yes (Hospitalization)
  Sender: FDA-Public Use
  Company Number: 2023A277828

PATIENT
  Age: 19723 Day
  Sex: Female

DRUGS (10)
  1. QUETIAPINE [Suspect]
     Active Substance: QUETIAPINE
     Indication: Suicide attempt
     Dosage: X 1000 MILLIGRAM IN ((DOSAGE INFORMATION): MAXIMUM DOSE)
     Route: 048
     Dates: start: 20230430
  2. BROMAZEPAM [Suspect]
     Active Substance: BROMAZEPAM
     Indication: Suicide attempt
     Dosage: X 24 MILLIGRAM IN ((DOSAGE INFORMATION): MAXIMUM DOSE)
     Route: 048
     Dates: start: 20230430
  3. TRAZODONE HYDROCHLORIDE [Suspect]
     Active Substance: TRAZODONE HYDROCHLORIDE
     Dosage: X 1650 MILLIGRAM IN ((DOSAGE INFORMATION): MAXIMUM DOSE)
     Route: 048
     Dates: start: 20230430
  4. OXYCODONE [Suspect]
     Active Substance: OXYCODONE
     Dosage: X 50 MILLIGRAM IN ((DOSAGE INFORMATION): MAXIMUM DOSE)
     Route: 048
     Dates: start: 20230430
  5. NEURONTIN [Suspect]
     Active Substance: GABAPENTIN
     Dosage: X 700 MILLIGRAM IN ((DOSAGE INFORMATION): MAXIMUM DOSE)
     Route: 048
     Dates: start: 20230430
  6. OXYCODONE HYDROCHLORIDE [Suspect]
     Active Substance: OXYCODONE HYDROCHLORIDE
     Dosage: X 15 MILLIGRAM IN ((DOSAGE INFORMATION): MAXIMUM DOSE)
     Route: 048
     Dates: start: 20230430
  7. SERTRALINE [Suspect]
     Active Substance: SERTRALINE HYDROCHLORIDE
     Dosage: X 100 MILLIGRAM IN ((DOSAGE INFORMATION): MAXIMUM DOSE)
     Route: 048
     Dates: start: 20230430
  8. ATORVASTATIN [Suspect]
     Active Substance: ATORVASTATIN
     Dosage: X 400 MILLIGRAM IN ((DOSAGE INFORMATION): MAXIMUM DOSE)
     Route: 048
     Dates: start: 20230430
  9. TIZANIDINE [Suspect]
     Active Substance: TIZANIDINE
     Dosage: X 36 MILLIGRAM IN ((DOSAGE INFORMATION): MAXIMUM DOSE)
     Route: 048
     Dates: start: 20230430
  10. DAFALGAN [Suspect]
     Active Substance: ACETAMINOPHEN
     Dosage: X 2000 MILLIGRAM IN ((DOSAGE INFORMATION): MAXIMUM DOSE)
     Route: 048

REACTIONS (2)
  - Intentional overdose [Recovering/Resolving]
  - Suicide attempt [Recovering/Resolving]

NARRATIVE: CASE EVENT DATE: 20230430
